FAERS Safety Report 10086020 (Version 1)
Quarter: 2014Q2

REPORT INFORMATION
  Report Type: Spontaneous
  Country: US (occurrence: None)
  Receive Date: 20140415
  Receipt Date: 20140415
  Transmission Date: 20141212
  Serious: Yes (Hospitalization, Congenital Anomaly, Other)
  Sender: FDA-Public Use
  Company Number: 09-AUR-10309

PATIENT
  Sex: Female

DRUGS (4)
  1. ZIDOVUDINE (ZIDOVUDINE) [Suspect]
     Indication: HIV INFECTION
  2. LAMIVUDINE (LAMIVUDINE) [Suspect]
     Indication: HIV INFECTION
  3. NELFINAVIR [Suspect]
  4. ZIDOVUDINE+LAMIVUDINE [Suspect]
     Indication: HIV INFECTION

REACTIONS (13)
  - Necrotising colitis [None]
  - Trisomy 21 [None]
  - Lung disorder [None]
  - Hypotonia neonatal [None]
  - Feeding disorder neonatal [None]
  - Impaired gastric emptying [None]
  - Haematochezia [None]
  - Intestinal dilatation [None]
  - Pneumatosis intestinalis [None]
  - Pulmonary hypertension [None]
  - Disseminated intravascular coagulation [None]
  - Euthyroid sick syndrome [None]
  - Ventricular septal defect [None]
